FAERS Safety Report 9501698 (Version 1)
Quarter: 2013Q3

REPORT INFORMATION
  Report Type: Spontaneous
  Country: RU (occurrence: RU)
  Receive Date: 20130905
  Receipt Date: 20130905
  Transmission Date: 20140515
  Serious: Yes (Other)
  Sender: FDA-Public Use
  Company Number: RU-ABBOTT-13X-251-1141502-00

PATIENT
  Age: 40 Year
  Sex: Female

DRUGS (2)
  1. DEPAKINE CHRONOSPHERE [Suspect]
     Indication: EPILEPSY
     Route: 048
     Dates: start: 201207
  2. SERETIDE [Concomitant]
     Indication: PRODUCT USED FOR UNKNOWN INDICATION

REACTIONS (5)
  - Mood altered [Unknown]
  - Product counterfeit [Unknown]
  - Drug ineffective [Unknown]
  - Convulsion [Unknown]
  - Medication residue present [Unknown]
